FAERS Safety Report 8212006-5 (Version None)
Quarter: 2012Q1

REPORT INFORMATION
  Report Type: 
  Country: None (occurrence: None)
  Receive Date: 20120315
  Receipt Date: 20120303
  Transmission Date: 20120608
  Serious: Yes (Hospitalization)
  Sender: FDA-Public Use
  Company Number: HU-BAXTER-2012BH006744

PATIENT
  Age: 51 Year
  Sex: Female

DRUGS (8)
  1. BETA BLOCKING AGENTS [Concomitant]
     Indication: PRODUCT USED FOR UNKNOWN INDICATION
     Route: 065
  2. DIANEAL PD-1 [Suspect]
     Route: 033
     Dates: start: 20091215
  3. IRON [Concomitant]
     Indication: PRODUCT USED FOR UNKNOWN INDICATION
     Route: 042
  4. EPOGEN [Concomitant]
     Indication: PRODUCT USED FOR UNKNOWN INDICATION
     Route: 065
  5. POTASSIUM CHLORIDE [Concomitant]
     Indication: PRODUCT USED FOR UNKNOWN INDICATION
     Route: 033
  6. CHEMOTHERAPY [Concomitant]
     Indication: PRODUCT USED FOR UNKNOWN INDICATION
     Route: 065
  7. DIANEAL PD-1 [Suspect]
     Indication: PERITONEAL DIALYSIS
     Route: 033
     Dates: start: 20091215
  8. ACE INHIBITOR NOS [Concomitant]
     Indication: PRODUCT USED FOR UNKNOWN INDICATION
     Route: 048

REACTIONS (1)
  - THROMBOSIS [None]
